FAERS Safety Report 6086906-9 (Version None)
Quarter: 2009Q1

REPORT INFORMATION
  Report Type: 
  Country: None (occurrence: None)
  Receive Date: 20090219
  Receipt Date: 20090211
  Transmission Date: 20090719
  Serious: Yes (Other)
  Sender: FDA-Public Use
  Company Number: CHPA2009US04267

PATIENT
  Age: 35 Year
  Sex: Male
  Weight: 83.9 kg

DRUGS (1)
  1. MAALOX MS TOTAL STOMACH RELIEF (NCH) (BISMUTH SUBSALICYLATE) [Suspect]
     Indication: DYSPEPSIA
     Dosage: 9 TO 12 TSP, ONCE IN A DAY, ORAL
     Route: 048
     Dates: start: 20090208, end: 20090208

REACTIONS (3)
  - FAECES DISCOLOURED [None]
  - HAEMATOCHEZIA [None]
  - OVERDOSE [None]
